FAERS Safety Report 13123641 (Version 4)
Quarter: 2020Q3

REPORT INFORMATION
  Report Type: Spontaneous
  Country: DE (occurrence: DE)
  Receive Date: 20170117
  Receipt Date: 20180424
  Transmission Date: 20201104
  Serious: Yes (Life-Threatening, Hospitalization, Other)
  Sender: FDA-Public Use
  Company Number: PHHY2017DE005155

PATIENT
  Age: 66 Year
  Sex: Male

DRUGS (20)
  1. ACYCLOVIR. [Concomitant]
     Active Substance: ACYCLOVIR
     Indication: PRODUCT USED FOR UNKNOWN INDICATION
     Route: 061
  2. TORSEMIDE. [Concomitant]
     Active Substance: TORSEMIDE
     Indication: PRODUCT USED FOR UNKNOWN INDICATION
     Route: 065
  3. PREDNISOLONE. [Suspect]
     Active Substance: PREDNISOLONE
     Indication: IMMUNOSUPPRESSION
     Dosage: 20 MG, UNK
     Route: 065
  4. VALGANCICLOVIR. [Suspect]
     Active Substance: VALGANCICLOVIR
     Route: 065
  5. VALGANCICLOVIR. [Suspect]
     Active Substance: VALGANCICLOVIR
     Indication: ANTIBIOTIC THERAPY
  6. VALGANCICLOVIR. [Suspect]
     Active Substance: VALGANCICLOVIR
     Indication: PRODUCT USED FOR UNKNOWN INDICATION
  7. PENTACARINAT [Concomitant]
     Active Substance: PENTAMIDINE ISETHIONATE
     Indication: PRODUCT USED FOR UNKNOWN INDICATION
     Route: 065
  8. ACETYLSALICYLIC ACID [Concomitant]
     Active Substance: ASPIRIN
     Indication: PRODUCT USED FOR UNKNOWN INDICATION
     Dosage: UNK
     Route: 065
  9. AMPICILLIN [Concomitant]
     Active Substance: AMPICILLIN
     Indication: PRODUCT USED FOR UNKNOWN INDICATION
     Route: 065
  10. METAMIZOLE [Concomitant]
     Active Substance: METAMIZOLE
     Indication: PRODUCT USED FOR UNKNOWN INDICATION
     Route: 048
  11. AMIKACIN. [Suspect]
     Active Substance: AMIKACIN
     Indication: PRODUCT USED FOR UNKNOWN INDICATION
     Dosage: UNK UNK, UNKNOWN FREQ.
     Route: 065
  12. ANTITHYMOCYTE IMMUNOGLOBULIN [Suspect]
     Active Substance: THYMOCYTE IMMUNE GLOBULIN NOS
     Indication: PRODUCT USED FOR UNKNOWN INDICATION
     Route: 065
     Dates: start: 201208, end: 201208
  13. TACROLIMUS. [Suspect]
     Active Substance: TACROLIMUS
     Indication: IMMUNOSUPPRESSION
     Dosage: 7.5 MG, UNK
     Route: 065
  14. MYCOPHENOLATE MOFETIL. [Suspect]
     Active Substance: MYCOPHENOLATE MOFETIL
     Indication: IMMUNOSUPPRESSION
     Dosage: 500 MG, TID
     Route: 065
  15. SULFAMETHOXAZOLE, TRIMETHOPRIM [Suspect]
     Active Substance: SULFAMETHOXAZOLE\TRIMETHOPRIM
     Indication: PRODUCT USED FOR UNKNOWN INDICATION
     Route: 065
  16. ISONIAZID. [Suspect]
     Active Substance: ISONIAZID
     Route: 065
  17. ACICLOVIR [Concomitant]
     Active Substance: ACYCLOVIR
     Dosage: ACICLOVIR AT A PROPHYLACTIC DOSAGE
     Route: 061
  18. ISONIAZID. [Suspect]
     Active Substance: ISONIAZID
     Indication: ANTIBIOTIC PROPHYLAXIS
  19. ISONIAZID. [Suspect]
     Active Substance: ISONIAZID
     Indication: PRODUCT USED FOR UNKNOWN INDICATION
  20. ISONIAZID. [Suspect]
     Active Substance: ISONIAZID
     Indication: ANTIBIOTIC PROPHYLAXIS

REACTIONS (35)
  - Herpes simplex [Unknown]
  - Mycobacterium fortuitum infection [Unknown]
  - Renal transplant failure [Recovered/Resolved]
  - Transplant failure [Recovered/Resolved]
  - Acute kidney injury [Recovering/Resolving]
  - Urogenital infection bacterial [Unknown]
  - Pancreatic pseudocyst [Unknown]
  - Inappropriate antidiuretic hormone secretion [Recovered/Resolved]
  - Arthralgia [Recovered/Resolved]
  - Cytomegalovirus viraemia [Unknown]
  - Ventricular tachycardia [Unknown]
  - Subcutaneous abscess [Unknown]
  - Pulmonary tuberculosis [Unknown]
  - Pneumonia [Unknown]
  - Hyperacusis [Unknown]
  - Complications of transplanted kidney [Recovered/Resolved]
  - Drug level fluctuating [Unknown]
  - Candida infection [Unknown]
  - Nocardiosis [Recovered/Resolved]
  - Urinary tract infection [Unknown]
  - Central nervous system lesion [Unknown]
  - Cardiac failure [Unknown]
  - Ventricular extrasystoles [Unknown]
  - Hyperkalaemia [Unknown]
  - Delayed graft function [Unknown]
  - Tachycardia [Unknown]
  - Hypoacusis [Unknown]
  - Pleural effusion [Unknown]
  - Enterococcal infection [Unknown]
  - Acinetobacter infection [Unknown]
  - Tremor [Unknown]
  - Genitourinary tract infection [Unknown]
  - Lymphocele [Unknown]
  - Productive cough [Unknown]
  - Hyponatraemia [Recovered/Resolved]

NARRATIVE: CASE EVENT DATE: 201209
